FAERS Safety Report 6549026-2 (Version None)
Quarter: 2010Q1

REPORT INFORMATION
  Report Type: 
  Country: None (occurrence: None)
  Receive Date: 20100125
  Receipt Date: 20100118
  Transmission Date: 20100710
  Serious: Yes (Hospitalization)
  Sender: FDA-Public Use
  Company Number: DE-JNJFOC-20100105815

PATIENT
  Age: 55 Year
  Sex: Female

DRUGS (6)
  1. HALDOL [Suspect]
     Indication: DRUG USE FOR UNKNOWN INDICATION
     Route: 065
     Dates: start: 20051228, end: 20061020
  2. SEROQUEL [Interacting]
     Indication: DRUG USE FOR UNKNOWN INDICATION
     Route: 065
     Dates: start: 20060125, end: 20060228
  3. SEROQUEL [Interacting]
     Route: 065
     Dates: start: 20060125, end: 20060228
  4. SEROQUEL [Interacting]
     Route: 065
     Dates: start: 20060125, end: 20060228
  5. SEROQUEL [Interacting]
     Route: 065
     Dates: start: 20060125, end: 20060228
  6. GLIANIMON [Interacting]
     Indication: DRUG USE FOR UNKNOWN INDICATION
     Route: 065
     Dates: start: 20060121, end: 20060129

REACTIONS (2)
  - DRUG INTERACTION [None]
  - HEPATIC FUNCTION ABNORMAL [None]
